FAERS Safety Report 7912470-2 (Version None)
Quarter: 2011Q4

REPORT INFORMATION
  Report Type: 
  Country: None (occurrence: None)
  Receive Date: 20111114
  Receipt Date: 20111108
  Transmission Date: 20120403
  Serious: No
  Sender: FDA-Public Use
  Company Number: US-PFIZER INC-2011274452

PATIENT
  Sex: Female
  Weight: 49.887 kg

DRUGS (2)
  1. PLAN B ONE-STEP [Suspect]
     Indication: CONTRACEPTION
     Dosage: 1.5 MG, SINGLE
     Route: 048
     Dates: start: 20111023, end: 20111023
  2. PROVERA [Suspect]
     Dosage: UNK

REACTIONS (2)
  - EYE PAIN [None]
  - OCULAR HYPERAEMIA [None]
